FAERS Safety Report 5385894-8 (Version None)
Quarter: 2007Q3

REPORT INFORMATION
  Report Type: 
  Country: None (occurrence: None)
  Receive Date: 20070710
  Receipt Date: 20070626
  Transmission Date: 20080115
  Serious: Yes (Death)
  Sender: FDA-Public Use
  Company Number: A-CH2007-15530

PATIENT
  Age: 75 Year
  Sex: Female

DRUGS (6)
  1. TRACLEER [Suspect]
     Indication: PULMONARY HYPERTENSION
     Dosage: SEE IMAGE
     Route: 048
  2. RAMIPRIL [Concomitant]
  3. NEXIUM [Concomitant]
  4. METOPROLOL SUCCINATE [Concomitant]
  5. ALDACTONE [Concomitant]
  6. PREDNISOLONE [Concomitant]

REACTIONS (1)
  - CORONARY ARTERY DISEASE [None]
